FAERS Safety Report 12155356 (Version 1)
Quarter: 2016Q1

REPORT INFORMATION
  Report Type: Spontaneous
  Country: BR (occurrence: BR)
  Receive Date: 20160307
  Receipt Date: 20160307
  Transmission Date: 20160526
  Serious: Yes (Other)
  Sender: FDA-Public Use
  Company Number: BR-JNJFOC-20160303734

PATIENT
  Sex: Male
  Weight: 93 kg

DRUGS (11)
  1. DEXAMETHASONE. [Concomitant]
     Active Substance: DEXAMETHASONE
     Indication: PAIN
     Route: 065
  2. OLANZAPINE. [Concomitant]
     Active Substance: OLANZAPINE
     Indication: PAIN
     Route: 065
  3. ZOMETA [Concomitant]
     Active Substance: ZOLEDRONIC ACID
     Indication: CHEMOTHERAPY
     Route: 065
  4. GABAPENTINE [Concomitant]
     Active Substance: GABAPENTIN
     Indication: PAIN
     Route: 065
  5. DUROGESIC D-TRANS [Suspect]
     Active Substance: FENTANYL
     Indication: PAIN
     Route: 062
     Dates: start: 20140701
  6. DULOXETINE. [Concomitant]
     Active Substance: DULOXETINE
     Indication: PAIN
     Route: 065
  7. MIOSAN [Concomitant]
     Active Substance: CYCLOBENZAPRINE
     Indication: PAIN
     Route: 065
  8. AMLODIPINE [Concomitant]
     Active Substance: AMLODIPINE BESYLATE
     Indication: PAIN
     Route: 065
  9. DUROGESIC D-TRANS [Suspect]
     Active Substance: FENTANYL
     Indication: PAIN
     Route: 062
     Dates: start: 20140701
  10. ENZALUTAMIDE [Concomitant]
     Active Substance: ENZALUTAMIDE
     Indication: CHEMOTHERAPY
     Route: 065
  11. DIPYRONE [Concomitant]
     Active Substance: DIPYRONE
     Indication: PAIN
     Route: 065

REACTIONS (1)
  - Prostate cancer [Unknown]
